FAERS Safety Report 23907369 (Version 1)
Quarter: 2024Q2

REPORT INFORMATION
  Report Type: Report from Study
  Country: US (occurrence: US)
  Receive Date: 20240528
  Receipt Date: 20240528
  Transmission Date: 20240716
  Serious: Yes (Other)
  Sender: FDA-Public Use
  Company Number: US-GILEAD-2024-0674231

PATIENT
  Age: 8 Year
  Sex: Female

DRUGS (11)
  1. AZTREONAM LYSINE [Suspect]
     Active Substance: AZTREONAM LYSINE
     Indication: Burkholderia pseudomallei infection
     Dosage: 75 MG, TID
     Route: 055
     Dates: start: 20200103
  2. BACLOFEN [Concomitant]
     Active Substance: BACLOFEN
  3. BUDESONIDE [Concomitant]
     Active Substance: BUDESONIDE
  4. CARNITINE [Concomitant]
     Active Substance: CARNITINE
  5. GLYCOPYRROLATE [Concomitant]
     Active Substance: GLYCOPYRROLATE
  6. LUPRON [Concomitant]
     Active Substance: LEUPROLIDE ACETATE
  7. NEXIUM I.V. [Concomitant]
     Active Substance: ESOMEPRAZOLE SODIUM
  8. ALUMINUM HYDROXIDE\MAGNESIUM CARBONATE [Concomitant]
     Active Substance: ALUMINUM HYDROXIDE\MAGNESIUM CARBONATE
  9. TRISODIUM CITRATE DIHYDRATE [Concomitant]
     Active Substance: TRISODIUM CITRATE DIHYDRATE
  10. TRILEPTAL [Concomitant]
     Active Substance: OXCARBAZEPINE
  11. VITAMIN B-1 [THIAMINE HYDROCHLORIDE] [Concomitant]

REACTIONS (2)
  - Pneumonia [Unknown]
  - Off label use [Not Recovered/Not Resolved]
